FAERS Safety Report 7973672-2 (Version None)
Quarter: 2011Q4

REPORT INFORMATION
  Report Type: 
  Country: None (occurrence: None)
  Receive Date: 20111213
  Receipt Date: 20111206
  Transmission Date: 20120403
  Serious: No
  Sender: FDA-Public Use
  Company Number: US-ELI_LILLY_AND_COMPANY-US201110001712

PATIENT
  Sex: Male

DRUGS (19)
  1. LISINOPRIL [Concomitant]
  2. TRAZODONE HCL [Concomitant]
  3. MELATONIN [Concomitant]
  4. ZANAFLEX [Concomitant]
  5. SPIRONOLACTONE [Concomitant]
  6. RANITIDINE [Concomitant]
  7. DULOXETINE HYDROCHLORIDE [Concomitant]
  8. LOPRESSOR [Concomitant]
  9. XANAX [Concomitant]
  10. NORCO [Concomitant]
  11. NEXIUM [Concomitant]
  12. PROCTOSONE [Concomitant]
  13. CIALIS [Suspect]
     Indication: ERECTILE DYSFUNCTION
     Dosage: 10 MG, PRN
  14. CIALIS [Suspect]
     Dosage: 15 MG, PRN
  15. CIALIS [Suspect]
     Dosage: 5 MG, PRN
  16. AMBIEN [Concomitant]
  17. NEURONTIN [Concomitant]
  18. ANALGESICS [Concomitant]
  19. SEROQUEL [Concomitant]

REACTIONS (7)
  - MYALGIA [None]
  - HYPOTENSION [None]
  - PAIN IN EXTREMITY [None]
  - HEADACHE [None]
  - INSOMNIA [None]
  - BACK PAIN [None]
  - VISUAL IMPAIRMENT [None]
